FAERS Safety Report 4864174-0 (Version None)
Quarter: 2005Q4

REPORT INFORMATION
  Report Type: 
  Country: None (occurrence: None)
  Receive Date: 20051222
  Receipt Date: 20051212
  Transmission Date: 20060501
  Serious: Yes (Hospitalization)
  Sender: FDA-Public Use
  Company Number: FI-AVENTIS-200514926EU

PATIENT
  Age: 88 Year
  Sex: Female

DRUGS (1)
  1. CODE UNBROKEN [Suspect]
     Indication: HYPERTENSION
     Dosage: DOSE: 1DF
     Route: 048
     Dates: start: 20031119, end: 20051129

REACTIONS (1)
  - PLEURISY [None]
